FAERS Safety Report 11661192 (Version 3)
Quarter: 2016Q1

REPORT INFORMATION
  Report Type: Report from Study
  Country: DE (occurrence: DE)
  Receive Date: 20151026
  Receipt Date: 20160115
  Transmission Date: 20160525
  Serious: Yes (Hospitalization, Other)
  Sender: FDA-Public Use
  Company Number: DE-ASTELLAS-2014US012386

PATIENT
  Age: 7 Year
  Sex: Female
  Weight: 25 kg

DRUGS (3)
  1. TACROLIMUS. [Suspect]
     Active Substance: TACROLIMUS
     Indication: DERMATITIS ATOPIC
     Dosage: 0.03 %, TWICE DAILY
     Route: 061
     Dates: start: 20120418
  2. BEPANTHEN                          /00178901/ [Concomitant]
     Indication: DERMATITIS ATOPIC
     Dosage: UNK UNK, UNKNOWN FREQ.
     Route: 061
  3. LINOLA [Concomitant]
     Indication: DERMATITIS ATOPIC
     Dosage: UNK UNK, UNKNOWN FREQ.
     Route: 061

REACTIONS (5)
  - Loss of consciousness [Unknown]
  - Loss of consciousness [Recovered/Resolved]
  - Loss of consciousness [Unknown]
  - Epilepsy [Unknown]
  - Syncope [Unknown]

NARRATIVE: CASE EVENT DATE: 201404
